FAERS Safety Report 16927754 (Version 2)
Quarter: 2019Q4

REPORT INFORMATION
  Report Type: Spontaneous
  Country: FR (occurrence: FR)
  Receive Date: 20191016
  Receipt Date: 20191030
  Transmission Date: 20200122
  Serious: Yes (Hospitalization)
  Sender: FDA-Public Use
  Company Number: NVSC2019FR002601

PATIENT
  Age: 78 Year
  Sex: Male
  Weight: 62 kg

DRUGS (4)
  1. MODOPAR [Suspect]
     Active Substance: BENSERAZIDE HYDROCHLORIDE\LEVODOPA
     Indication: PARKINSON^S DISEASE
     Dosage: 2 DF, QD
     Route: 048
     Dates: start: 2005
  2. MANTADIX [Suspect]
     Active Substance: AMANTADINE HYDROCHLORIDE
     Indication: PARKINSON^S DISEASE
     Dosage: 3 DF, QD
     Route: 048
     Dates: start: 20171030
  3. STALEVO [Suspect]
     Active Substance: CARBIDOPA\ENTACAPONE\LEVODOPA
     Indication: PARKINSON^S DISEASE
     Dosage: 5 DF, QD (150/37.5/200 MG)
     Route: 048
     Dates: start: 2005
  4. SINEMET [Suspect]
     Active Substance: CARBIDOPA\LEVODOPA
     Indication: PARKINSON^S DISEASE
     Dosage: 1 DF, QD
     Route: 048
     Dates: start: 2005

REACTIONS (6)
  - Aggression [Recovered/Resolved]
  - Behaviour disorder [Recovered/Resolved]
  - Fall [Unknown]
  - Hallucination [Recovered/Resolved]
  - Extrapyramidal disorder [Recovered/Resolved]
  - Dyskinesia [Recovered/Resolved]

NARRATIVE: CASE EVENT DATE: 20190807
